FAERS Safety Report 8465647 (Version 4)
Quarter: 2012Q4

REPORT INFORMATION
  Report Type: 
  Country: US (occurrence: US)
  Receive Date: 20120319
  Receipt Date: 20121003
  Transmission Date: 20130627
  Serious: Yes (Hospitalization, Other)
  Sender: FDA-Public Use
  Company Number: US-ACTELION-A-NJ2012-62462

PATIENT
  Age: 45 Year
  Sex: Female

DRUGS (2)
  1. TRACLEER [Suspect]
     Indication: PULMONARY ARTERIAL HYPERTENSION
     Dosage: UNK
     Route: 048
  2. ASPIRIN [Concomitant]

REACTIONS (13)
  - Suicidal ideation [Recovered/Resolved]
  - Fall [Unknown]
  - Dizziness [Unknown]
  - Cardiac failure congestive [Unknown]
  - Weight increased [Unknown]
  - Abdominal distension [Unknown]
  - Oedema peripheral [Unknown]
  - Blood glucose decreased [Unknown]
  - Muscular weakness [Unknown]
  - Fatigue [Unknown]
  - Blood potassium decreased [Unknown]
  - Somnolence [Unknown]
  - Hypotension [Unknown]
